FAERS Safety Report 13027552 (Version 3)
Quarter: 2018Q4

REPORT INFORMATION
  Report Type: Report from Study
  Country: None (occurrence: DE)
  Receive Date: 20161214
  Receipt Date: 20181226
  Transmission Date: 20190204
  Serious: Yes (Other)
  Sender: FDA-Public Use
  Company Number: DE-ABBVIE-15K-062-1397406-00

PATIENT
  Age: 54 Year
  Sex: Female

DRUGS (7)
  1. HUMIRA [Suspect]
     Active Substance: ADALIMUMAB
     Route: 058
     Dates: start: 2016
  2. HUMIRA [Suspect]
     Active Substance: ADALIMUMAB
     Route: 058
     Dates: end: 201807
  3. TILIDIN [Concomitant]
     Active Substance: NALOXONE HYDROCHLORIDE\TILIDINE HYDROCHLORIDE
     Indication: PRODUCT USED FOR UNKNOWN INDICATION
     Dates: end: 2014
  4. MORPHINE [Concomitant]
     Active Substance: MORPHINE
     Indication: PRODUCT USED FOR UNKNOWN INDICATION
     Dates: start: 2014
  5. HUMIRA [Suspect]
     Active Substance: ADALIMUMAB
     Route: 058
     Dates: start: 20161125, end: 2016
  6. ARCOXIA [Concomitant]
     Active Substance: ETORICOXIB
     Indication: PRODUCT USED FOR UNKNOWN INDICATION
  7. HUMIRA [Suspect]
     Active Substance: ADALIMUMAB
     Indication: ANKYLOSING SPONDYLITIS
     Route: 058
     Dates: start: 20120501, end: 20161002

REACTIONS (16)
  - Bursitis [Recovered/Resolved]
  - Abdominal pain upper [Unknown]
  - Device dispensing error [Unknown]
  - Weight decreased [Unknown]
  - Bursitis [Unknown]
  - Musculoskeletal stiffness [Recovering/Resolving]
  - Cough [Recovered/Resolved]
  - Bronchitis [Recovering/Resolving]
  - Back pain [Recovering/Resolving]
  - Lymphadenopathy [Unknown]
  - Gingivitis [Unknown]
  - Secretion discharge [Recovered/Resolved]
  - Chills [Unknown]
  - Nasopharyngitis [Recovered/Resolved]
  - Malaise [Unknown]
  - Back pain [Unknown]

NARRATIVE: CASE EVENT DATE: 201212
